FAERS Safety Report 10568272 (Version 1)
Quarter: 2014Q4

REPORT INFORMATION
  Report Type: Spontaneous
  Country: US (occurrence: None)
  Receive Date: 20141024
  Receipt Date: 20141024
  Transmission Date: 20150529
  Serious: No
  Sender: FDA-Public Use
  Company Number: 1446314

PATIENT
  Age: 80 Year
  Sex: Female

DRUGS (2)
  1. DECADRON [Concomitant]
     Active Substance: DEXAMETHASONE
  2. ZELBORAF [Suspect]
     Active Substance: VEMURAFENIB
     Indication: MALIGNANT MELANOMA

REACTIONS (2)
  - Blood creatinine increased [None]
  - Hypercalcaemia [None]

NARRATIVE: CASE EVENT DATE: 20140726
